FAERS Safety Report 13137748 (Version 4)
Quarter: 2017Q1

REPORT INFORMATION
  Report Type: Spontaneous
  Country: US (occurrence: US)
  Receive Date: 20170123
  Receipt Date: 20170123
  Transmission Date: 20170428
  Serious: No
  Sender: FDA-Public Use
  Company Number: US-UNITED THERAPEUTICS-UNT-2016-013115

PATIENT
  Sex: Male
  Weight: 64.85 kg

DRUGS (3)
  1. REMODULIN [Suspect]
     Active Substance: TREPROSTINIL
     Indication: PULMONARY ARTERIAL HYPERTENSION
     Dosage: 0.016 ?G/KG, CONTINUING, FLOW RATE: 0.031 ML/HR
     Route: 058
     Dates: start: 20160511
  2. LETAIRIS [Concomitant]
     Active Substance: AMBRISENTAN
     Indication: PRODUCT USED FOR UNKNOWN INDICATION
  3. ADCIRCA [Concomitant]
     Active Substance: TADALAFIL
     Indication: PRODUCT USED FOR UNKNOWN INDICATION

REACTIONS (10)
  - Diarrhoea [Unknown]
  - Chills [Unknown]
  - Pain [Unknown]
  - Urine output decreased [Unknown]
  - Dry mouth [Unknown]
  - Dyspnoea [Unknown]
  - Headache [Unknown]
  - Myalgia [Unknown]
  - Infusion site irritation [Unknown]
  - Induration [Unknown]

NARRATIVE: CASE EVENT DATE: 2016
